FAERS Safety Report 5227882-8 (Version None)
Quarter: 2007Q1

REPORT INFORMATION
  Report Type: 
  Country: None (occurrence: None)
  Receive Date: 20070202
  Receipt Date: 20070123
  Transmission Date: 20070707
  Serious: Yes (Other)
  Sender: FDA-Public Use
  Company Number: FR-PFIZER INC-2006154024

PATIENT
  Sex: Male
  Weight: 80 kg

DRUGS (1)
  1. LYRICA [Suspect]
     Indication: PAIN
     Dosage: DAILY DOSE:750MG
     Route: 048
     Dates: start: 20060818, end: 20060828

REACTIONS (2)
  - DEAFNESS [None]
  - TINNITUS [None]
